FAERS Safety Report 6290660-5 (Version None)
Quarter: 2009Q3

REPORT INFORMATION
  Report Type: 
  Country: None (occurrence: None)
  Receive Date: 20090727
  Receipt Date: 20080905
  Transmission Date: 20100115
  Serious: Yes (Hospitalization)
  Sender: FDA-Public Use
  Company Number: OMPQ-PR-0809S-0778

PATIENT
  Age: 43 Year
  Sex: Male

DRUGS (1)
  1. OMNIPAQUE 300 [Suspect]
     Indication: CERVICAL MYELOPATHY
     Dosage: 20ML, SINGLE DOSE, I.T.
     Route: 038
     Dates: start: 20080812, end: 20080812

REACTIONS (1)
  - MENINGITIS CHEMICAL [None]
